FAERS Safety Report 5076748-5 (Version None)
Quarter: 2006Q3

REPORT INFORMATION
  Report Type: 
  Country: None (occurrence: None)
  Receive Date: 20060807
  Receipt Date: 20060721
  Transmission Date: 20061208
  Serious: Yes (Hospitalization)
  Sender: FDA-Public Use
  Company Number: CA200607004045

PATIENT
  Age: 5 Year
  Sex: Male
  Weight: 30.6 kg

DRUGS (3)
  1. SOMATROPIN (SOMATROPIN) [Suspect]
     Indication: GROWTH HORMONE DEFICIENCY
     Dosage: 0.5 MG, DAILY (1/D),
     Dates: start: 20010920
  2. CORTEF (HYDROCORITSONE ACETATE) [Concomitant]
  3. SYNTHROID [Concomitant]

REACTIONS (6)
  - ADENOIDAL HYPERTROPHY [None]
  - APNOEA [None]
  - EPISTAXIS [None]
  - OBSTRUCTION [None]
  - OXYGEN SATURATION DECREASED [None]
  - TONSILLAR HYPERTROPHY [None]
